FAERS Safety Report 6661278-7 (Version None)
Quarter: 2010Q1

REPORT INFORMATION
  Report Type: 
  Country: None (occurrence: None)
  Receive Date: 20100331
  Receipt Date: 20100323
  Transmission Date: 20100710
  Serious: Yes (Other)
  Sender: FDA-Public Use
  Company Number: ES-AMGEN-QUU394090

PATIENT
  Sex: Male
  Weight: 96 kg

DRUGS (2)
  1. NPLATE [Suspect]
     Indication: IDIOPATHIC THROMBOCYTOPENIC PURPURA
     Route: 058
     Dates: start: 20081201
  2. RITUXIMAB [Concomitant]

REACTIONS (8)
  - ASTHENIA [None]
  - DECREASED APPETITE [None]
  - DISCOMFORT [None]
  - EPISTAXIS [None]
  - HAEMORRHAGE [None]
  - PLATELET COUNT DECREASED [None]
  - PRURITUS [None]
  - THERAPEUTIC RESPONSE DECREASED [None]
